FAERS Safety Report 6129354-5 (Version None)
Quarter: 2009Q1

REPORT INFORMATION
  Report Type: 
  Country: None (occurrence: None)
  Receive Date: 20090320
  Receipt Date: 20030401
  Transmission Date: 20090719
  Serious: Yes (Hospitalization)
  Sender: FDA-Public Use
  Company Number: 005830

PATIENT
  Age: 5 Year
  Sex: Male
  Weight: 18.4 kg

DRUGS (13)
  1. BUSULFEX (BUSULFEX) INJECTION [Suspect]
     Indication: BONE MARROW TRANSPLANT
     Dosage: 80 MG, DAILY DOSE,  INTRAVENOUS
     Route: 042
     Dates: start: 20030304, end: 20030308
  2. MELPHALAN(MELPHALAN)INJECTION [Suspect]
     Indication: BONE MARROW TRANSPLANT
     Dosage: 140 MG/M2, DAILY DOSE,  INTRAVENOUS
     Route: 042
     Dates: start: 20030309, end: 20030309
  3. TIEMONIUM IODIDE (TIEMONIUM IODIDE) [Concomitant]
  4. OMEPRAZOLE [Concomitant]
  5. PHLOROGLUCINOL (PHLOROGLUCINOL) [Concomitant]
  6. ONDANSETRON HCL [Concomitant]
  7. URSODIOL [Concomitant]
  8. TPN [Concomitant]
  9. CO-TRIMOXAZOLE (SULFAMETHOXAZOLE [Concomitant]
  10. LACTITOL (LACTITOL) [Concomitant]
  11. MORPHINE [Concomitant]
  12. ALIZAPRIDE (ALIZAPRIDE) [Concomitant]
  13. PHYTONADIONE [Concomitant]

REACTIONS (11)
  - ABDOMINAL PAIN [None]
  - ASCITES [None]
  - DYSPNOEA [None]
  - HEPATOMEGALY [None]
  - HERPES ZOSTER [None]
  - OXYGEN SATURATION DECREASED [None]
  - PERITONEAL EFFUSION [None]
  - PLEURAL EFFUSION [None]
  - PYREXIA [None]
  - VENOOCCLUSIVE LIVER DISEASE [None]
  - WEIGHT INCREASED [None]
